FAERS Safety Report 10093056 (Version 3)
Quarter: 2015Q1

REPORT INFORMATION
  Report Type: Spontaneous
  Country: US (occurrence: US)
  Receive Date: 20140421
  Receipt Date: 20150119
  Transmission Date: 20150720
  Serious: Yes (Other)
  Sender: FDA-Public Use
  Company Number: US-SANOFI-AVENTIS-2013SA092681

PATIENT
  Age: 61 Year
  Sex: Female

DRUGS (6)
  1. ALLEGRA [Suspect]
     Active Substance: FEXOFENADINE HYDROCHLORIDE
     Indication: URTICARIA
     Dosage: TAKEN FROM: ABOUT 2.5 YEARS AGO
     Route: 048
  2. ALLEGRA [Suspect]
     Active Substance: FEXOFENADINE HYDROCHLORIDE
     Indication: URTICARIA
     Dosage: TAKEN FROM: ABOUT 2.5 YEARS AGO
     Route: 048
  3. ACCOLATE [Suspect]
     Active Substance: ZAFIRLUKAST
     Route: 065
     Dates: start: 20150112
  4. PEPCID [Suspect]
     Active Substance: FAMOTIDINE
     Route: 065
     Dates: start: 20150112
  5. ZYRTEC [Suspect]
     Active Substance: CETIRIZINE HYDROCHLORIDE
     Route: 065
     Dates: start: 20150108
  6. PREDNISONE. [Concomitant]
     Active Substance: PREDNISONE

REACTIONS (6)
  - Extra dose administered [Unknown]
  - Gastrointestinal disorder [Not Recovered/Not Resolved]
  - Mental impairment [Not Recovered/Not Resolved]
  - Therapeutic response decreased [Unknown]
  - Malaise [Unknown]
  - Somnolence [Not Recovered/Not Resolved]

NARRATIVE: CASE EVENT DATE: 20150112
